FAERS Safety Report 4701397-5 (Version None)
Quarter: 2005Q2

REPORT INFORMATION
  Report Type: 
  Country: None (occurrence: None)
  Receive Date: 20050627
  Receipt Date: 20050616
  Transmission Date: 20051028
  Serious: Yes (Life-Threatening, Hospitalization, Other)
  Sender: FDA-Public Use
  Company Number: 2005-05-1631

PATIENT
  Age: 68 Year
  Sex: Male
  Weight: 49 kg

DRUGS (6)
  1. PEG-INTRON [Suspect]
     Indication: HEPATITIS C
     Dosage: 40 MCG QW SUBCUTANEOUS
     Route: 058
     Dates: start: 20050322, end: 20050504
  2. REBETOL [Suspect]
     Indication: HEPATITIS C
     Dosage: SEE IMAGE
     Route: 048
     Dates: start: 20050307, end: 20050310
  3. REBETOL [Suspect]
     Indication: HEPATITIS C
     Dosage: SEE IMAGE
     Route: 048
     Dates: start: 20050307, end: 20050328
  4. REBETOL [Suspect]
     Indication: HEPATITIS C
     Dosage: SEE IMAGE
     Route: 048
     Dates: start: 20050311, end: 20050328
  5. INTRON A [Suspect]
     Indication: HEPATITIS C
     Dosage: 3 MIU 6X/WK INTRAMUSCULAR
     Route: 030
     Dates: start: 20050307, end: 20050321
  6. PROGRAF [Concomitant]

REACTIONS (6)
  - ANAEMIA [None]
  - CARDIAC FAILURE [None]
  - HAEMORRHAGE [None]
  - MYOCARDIAL INFARCTION [None]
  - PROCEDURAL COMPLICATION [None]
  - SHOCK [None]
